FAERS Safety Report 6376575-2 (Version None)
Quarter: 2009Q3

REPORT INFORMATION
  Report Type: 
  Country: None (occurrence: None)
  Receive Date: 20090925
  Receipt Date: 20090913
  Transmission Date: 20100115
  Serious: Yes (Other)
  Sender: FDA-Public Use
  Company Number: US-PFIZER INC-2009248471

PATIENT
  Sex: Male

DRUGS (1)
  1. TIKOSYN [Suspect]

REACTIONS (2)
  - CARDIAC PACEMAKER INSERTION [None]
  - SINUS ARRHYTHMIA [None]
